FAERS Safety Report 12180552 (Version 1)
Quarter: 2016Q1

REPORT INFORMATION
  Report Type: Spontaneous
  Country: US (occurrence: None)
  Receive Date: 20160314
  Receipt Date: 20160314
  Transmission Date: 20160526
  Serious: Yes (Other)
  Sender: FDA-Public Use
  Company Number: None

PATIENT
  Age: 8 Year
  Sex: Male
  Weight: 27.22 kg

DRUGS (2)
  1. DEXMETHYLPHENIDATE HYDROCHLORIDE EXTENDED-RELEASE [Suspect]
     Active Substance: DEXMETHYLPHENIDATE HYDROCHLORIDE
     Indication: ATTENTION DEFICIT/HYPERACTIVITY DISORDER
     Dosage: 1 CAPSULE ONCE DAILY TAKEN BY MOUTH
     Route: 048
     Dates: start: 20160203, end: 20160215
  2. DEXMETHYLPHENIDATE HYDROCHLORIDE EXTENDED-RELEASE [Concomitant]
     Active Substance: DEXMETHYLPHENIDATE HYDROCHLORIDE

REACTIONS (7)
  - Anxiety [None]
  - Mood swings [None]
  - Aggression [None]
  - Personality change [None]
  - Thinking abnormal [None]
  - Product substitution issue [None]
  - Paranoia [None]

NARRATIVE: CASE EVENT DATE: 20160215
